FAERS Safety Report 6967998-9 (Version None)
Quarter: 2010Q3

REPORT INFORMATION
  Report Type: 
  Country: None (occurrence: None)
  Receive Date: 20100907
  Receipt Date: 20100825
  Transmission Date: 20110219
  Serious: Yes (Hospitalization)
  Sender: FDA-Public Use
  Company Number: A0878989A

PATIENT
  Age: 69 Year
  Sex: Male

DRUGS (10)
  1. WELLBUTRIN [Suspect]
     Indication: DEPRESSION
     Dosage: 300MG PER DAY
     Route: 048
     Dates: start: 20070101
  2. CELEXA [Suspect]
     Indication: DEPRESSION
     Dosage: 40MG PER DAY
     Route: 048
     Dates: start: 20061022
  3. BLINDED TRIAL MEDICATION [Concomitant]
     Indication: OSTEOARTHRITIS
     Dates: start: 20081001
  4. ZOCOR [Concomitant]
     Dates: start: 20081103
  5. ALDACTONE [Concomitant]
     Dates: start: 20060101
  6. ALTACE [Concomitant]
     Dates: start: 20060101
  7. ASPIRIN [Concomitant]
     Dates: start: 20010101
  8. AMBIEN [Concomitant]
     Dates: start: 20060101
  9. TOPROL-XL [Concomitant]
     Dates: start: 20090317
  10. RISPERDAL [Concomitant]
     Dates: start: 20000101

REACTIONS (2)
  - DIZZINESS [None]
  - VENTRICULAR TACHYCARDIA [None]
